FAERS Safety Report 9315923 (Version 2)
Quarter: 2013Q3

REPORT INFORMATION
  Report Type: Spontaneous
  Country: US (occurrence: US)
  Receive Date: 20130530
  Receipt Date: 20130828
  Transmission Date: 20140515
  Serious: Yes (Other)
  Sender: FDA-Public Use
  Company Number: US-ROCHE-1230109

PATIENT
  Age: 64 Year
  Sex: Female

DRUGS (3)
  1. BONIVA [Suspect]
     Indication: OSTEOPOROSIS
     Route: 048
     Dates: start: 200705, end: 2011
  2. FOSAMAX [Suspect]
     Indication: OSTEOPOROSIS
     Route: 048
     Dates: start: 2001, end: 200703
  3. MAXIMUM D3 [Concomitant]

REACTIONS (5)
  - Emotional distress [Unknown]
  - Pelvic fracture [Unknown]
  - Rib fracture [Unknown]
  - Femur fracture [Unknown]
  - Anxiety [Unknown]
